FAERS Safety Report 17126490 (Version 1)
Quarter: 2019Q4

REPORT INFORMATION
  Report Type: Spontaneous
  Country: US (occurrence: US)
  Receive Date: 20191209
  Receipt Date: 20191209
  Transmission Date: 20200122
  Serious: No
  Sender: FDA-Public Use
  Company Number: US-UCBSA-2017012197

PATIENT
  Sex: Female

DRUGS (8)
  1. LAMICTAL [Concomitant]
     Active Substance: LAMOTRIGINE
     Dosage: 3 DF, 2X/DAY (BID)
  2. MIRALAX [Concomitant]
     Active Substance: POLYETHYLENE GLYCOL 3350
     Indication: PRODUCT USED FOR UNKNOWN INDICATION
     Dosage: 17 G, ONCE DAILY (QD)
     Route: 048
  3. LAMICTAL [Concomitant]
     Active Substance: LAMOTRIGINE
     Indication: SEIZURE
     Dosage: HALF TABLET
     Route: 048
  4. LAMICTAL [Concomitant]
     Active Substance: LAMOTRIGINE
     Dosage: ONE TABLET
  5. KEPPRA [Suspect]
     Active Substance: LEVETIRACETAM
     Indication: SEIZURE
     Dosage: UNKNOWN DOSE
  6. LAMICTAL [Concomitant]
     Active Substance: LAMOTRIGINE
     Dosage: 1.5 TABLET
  7. LAMICTAL [Concomitant]
     Active Substance: LAMOTRIGINE
     Dosage: 2 DF, 2X/DAY (BID)
  8. LAMICTAL [Concomitant]
     Active Substance: LAMOTRIGINE
     Dosage: 2.5 DF, 2X/DAY (BID)

REACTIONS (1)
  - Nightmare [Unknown]
